FAERS Safety Report 21258176 (Version 1)
Quarter: 2022Q3

REPORT INFORMATION
  Report Type: Report from Study
  Country: CA (occurrence: CA)
  Receive Date: 20220826
  Receipt Date: 20220826
  Transmission Date: 20221027
  Serious: Yes (Death, Other)
  Sender: FDA-Public Use
  Company Number: CA-BAYER-2022A119018

PATIENT
  Sex: Male

DRUGS (1)
  1. EYLEA [Suspect]
     Active Substance: AFLIBERCEPT
     Indication: Diabetic retinal oedema
     Dosage: STRENGTH: 40 MG/ML; 2 MG; SOLUTION FOR INJECTION
     Dates: start: 20190705

REACTIONS (1)
  - Death [Fatal]

NARRATIVE: CASE EVENT DATE: 20220103
